FAERS Safety Report 21878678 (Version 1)
Quarter: 2023Q1

REPORT INFORMATION
  Report Type: Spontaneous
  Country: US (occurrence: None)
  Receive Date: 20230117
  Receipt Date: 20230117
  Transmission Date: 20230418
  Serious: Yes (Hospitalization, Disabling)
  Sender: FDA-Public Use
  Company Number: None

PATIENT
  Age: 66 Year
  Sex: Male

DRUGS (14)
  1. TACROLIMUS [Suspect]
     Active Substance: TACROLIMUS
     Indication: Renal transplant
     Dosage: FREQUENCY : TWICE A DAY;?
     Route: 048
  2. MYCOPHENOLIC ACID [Suspect]
     Active Substance: MYCOPHENOLIC ACID
     Indication: Renal transplant
     Dosage: FREQUENCY : TWICE A DAY;?
     Route: 048
  3. LOVASTATIN [Concomitant]
     Active Substance: LOVASTATIN
  4. NOVOLOG [Concomitant]
     Active Substance: INSULIN ASPART
  5. LANTUS SOLOSTAR [Concomitant]
     Active Substance: INSULIN GLARGINE
  6. ATORVASTATIN [Concomitant]
     Active Substance: ATORVASTATIN
  7. TORSEMIDE [Concomitant]
     Active Substance: TORSEMIDE
  8. RETACRIT [Concomitant]
     Active Substance: EPOETIN ALFA-EPBX
  9. CALCITRIOL [Concomitant]
     Active Substance: CALCITRIOL
  10. CALCIUM ACETATE [Concomitant]
     Active Substance: CALCIUM ACETATE
  11. LEVEMIR [Concomitant]
     Active Substance: INSULIN DETEMIR
  12. SIMBRINZA [Concomitant]
     Active Substance: BRIMONIDINE TARTRATE\BRINZOLAMIDE
  13. MAGOXIDE [Concomitant]
  14. CLONIDINE [Concomitant]
     Active Substance: CLONIDINE

REACTIONS (1)
  - Post procedural complication [None]

NARRATIVE: CASE EVENT DATE: 20221217
